FAERS Safety Report 14220400 (Version 1)
Quarter: 2017Q4

REPORT INFORMATION
  Report Type: Spontaneous
  Country: SA (occurrence: SA)
  Receive Date: 20171124
  Receipt Date: 20171124
  Transmission Date: 20180321
  Serious: Yes (Other)
  Sender: FDA-Public Use
  Company Number: PHHY2017SA171382

PATIENT
  Age: 60 Year

DRUGS (1)
  1. DICLAC [Suspect]
     Active Substance: DICLOFENAC
     Indication: PAIN
     Dosage: 1 DF, BID
     Route: 048
     Dates: start: 20171112, end: 20171113

REACTIONS (1)
  - Urinary retention [Recovered/Resolved]
